FAERS Safety Report 10174473 (Version 1)
Quarter: 2014Q2

REPORT INFORMATION
  Report Type: Spontaneous
  Country: NO (occurrence: NO)
  Receive Date: 20140515
  Receipt Date: 20140515
  Transmission Date: 20141212
  Serious: Yes (Other)
  Sender: FDA-Public Use
  Company Number: NO-OTSUKA-EU-2014-10154

PATIENT
  Sex: Male

DRUGS (3)
  1. ABILIFY MAINTENA [Suspect]
     Indication: SCHIZOPHRENIA
     Dosage: UNK, UNKNOWN
     Route: 030
     Dates: start: 201402, end: 201403
  2. CISORDINOL [Suspect]
     Indication: SCHIZOPHRENIA
     Dosage: 200 MG MILLIGRAM(S), UNKNOWN
     Route: 030
     Dates: end: 201403
  3. CISORDINOL [Suspect]
     Dosage: 500 MG MILLIGRAM(S), UNKNOWN
     Route: 030
     Dates: start: 201403

REACTIONS (3)
  - Hypersexuality [Recovering/Resolving]
  - Restlessness [Recovering/Resolving]
  - Blood prolactin increased [Unknown]
